FAERS Safety Report 13654412 (Version 1)
Quarter: 2017Q2

REPORT INFORMATION
  Report Type: Spontaneous
  Country: FR (occurrence: FR)
  Receive Date: 20170615
  Receipt Date: 20170615
  Transmission Date: 20170830
  Serious: Yes (Other)
  Sender: FDA-Public Use
  Company Number: FR-MERCK KGAA-2022056

PATIENT
  Age: 65 Year
  Sex: Female

DRUGS (5)
  1. TEMERIT [Concomitant]
     Active Substance: NEBIVOLOL
  2. HYTACAND(BLOPRESS PLUS) [Concomitant]
  3. KARDEGIC [Concomitant]
     Active Substance: ASPIRIN LYSINE
  4. TETRYZOLINE HYDROCHLORIDE EYE DROPS [Concomitant]
  5. NOVOTHYROX [Suspect]
     Active Substance: LEVOTHYROXINE SODIUM
     Indication: AUTOIMMUNE THYROIDITIS
     Dates: start: 201705

REACTIONS (7)
  - Hypophagia [None]
  - Diarrhoea [None]
  - Feeling abnormal [None]
  - Abdominal pain [None]
  - Hyperthyroidism [None]
  - Dizziness [None]
  - Amnesia [None]

NARRATIVE: CASE EVENT DATE: 201705
